FAERS Safety Report 5689145-6 (Version None)
Quarter: 2008Q1

REPORT INFORMATION
  Report Type: 
  Country: None (occurrence: None)
  Receive Date: 20080331
  Receipt Date: 20080319
  Transmission Date: 20080703
  Serious: Yes (Hospitalization)
  Sender: FDA-Public Use
  Company Number: JP-SANOFI-SYNTHELABO-F01200800465

PATIENT
  Sex: Male
  Weight: 75 kg

DRUGS (5)
  1. FLUITRAN [Concomitant]
     Indication: HYPERTENSION
     Dosage: 2 MG
     Route: 048
     Dates: start: 20070419
  2. DIOVAN [Concomitant]
     Indication: HYPERTENSION
     Dosage: 80 MG
     Route: 048
     Dates: start: 20070419
  3. ARTIST [Concomitant]
     Indication: HYPERTENSION
     Dosage: 10 MG
     Route: 048
     Dates: start: 20070419
  4. SEROQUEL [Concomitant]
     Dosage: 25 MG
     Route: 048
     Dates: start: 20070419
  5. CLOPIDOGREL [Suspect]
     Indication: ARTERIAL THROMBOSIS
     Dosage: 75 MG
     Route: 048
     Dates: start: 20070419

REACTIONS (1)
  - NEPHROLITHIASIS [None]
